FAERS Safety Report 10399484 (Version 2)
Quarter: 2014Q3

REPORT INFORMATION
  Report Type: Spontaneous
  Country: PL (occurrence: PL)
  Receive Date: 20140821
  Receipt Date: 20140902
  Transmission Date: 20150326
  Serious: Yes (Hospitalization, Other)
  Sender: FDA-Public Use
  Company Number: PL-PFIZER INC-2014230055

PATIENT
  Age: 73 Year
  Sex: Female

DRUGS (3)
  1. XALATAN [Suspect]
     Active Substance: LATANOPROST
     Indication: GLAUCOMA
     Dosage: UNK
  2. COMBIGAN [Suspect]
     Active Substance: BRIMONIDINE TARTRATE\TIMOLOL MALEATE
     Indication: GLAUCOMA
     Dosage: UNK
  3. TRUSOPT [Suspect]
     Active Substance: DORZOLAMIDE HYDROCHLORIDE
     Indication: GLAUCOMA
     Dosage: UNK

REACTIONS (9)
  - Conjunctivitis allergic [Unknown]
  - Conjunctival hyperaemia [Unknown]
  - Conjunctival oedema [Unknown]
  - Eyelid oedema [Unknown]
  - Corneal opacity [Recovered/Resolved]
  - Intraocular pressure increased [Unknown]
  - Erythema of eyelid [Unknown]
  - Papilloma conjunctival [Unknown]
  - Hypersensitivity [Unknown]
